FAERS Safety Report 19788142 (Version 1)
Quarter: 2021Q3

REPORT INFORMATION
  Report Type: Spontaneous
  Country: US (occurrence: US)
  Receive Date: 20210903
  Receipt Date: 20210903
  Transmission Date: 20211014
  Serious: No
  Sender: FDA-Public Use
  Company Number: US-HARMONY BIOSCIENCES-2021HMY01161

PATIENT
  Sex: Female
  Weight: 52.61 kg

DRUGS (3)
  1. UNSPECIFIED MEDICATIONS [Concomitant]
     Active Substance: UNSPECIFIED INGREDIENT
  2. WAKIX [Suspect]
     Active Substance: PITOLISANT HYDROCHLORIDE
     Indication: CATAPLEXY
     Dosage: 17.8 MG, 1X/DAY
     Route: 048
     Dates: start: 2021, end: 20210626
  3. WAKIX [Suspect]
     Active Substance: PITOLISANT HYDROCHLORIDE
     Indication: NARCOLEPSY
     Dosage: 8.9 MG ^LOWER DOSE^ FOR A COUPLE OF WEEKS
     Route: 048
     Dates: start: 202104, end: 2021

REACTIONS (13)
  - Asthenia [Not Recovered/Not Resolved]
  - Nausea [Not Recovered/Not Resolved]
  - Feeling abnormal [Not Recovered/Not Resolved]
  - Abnormal dreams [Recovering/Resolving]
  - Decreased appetite [Not Recovered/Not Resolved]
  - Panic attack [Recovering/Resolving]
  - Unevaluable event [Recovering/Resolving]
  - Middle insomnia [Recovering/Resolving]
  - Insomnia [Recovering/Resolving]
  - Malnutrition [Not Recovered/Not Resolved]
  - Lethargy [Not Recovered/Not Resolved]
  - Headache [Recovered/Resolved]
  - Fatigue [Not Recovered/Not Resolved]

NARRATIVE: CASE EVENT DATE: 2021
